FAERS Safety Report 5526513-7 (Version None)
Quarter: 2007Q4

REPORT INFORMATION
  Report Type: 
  Country: None (occurrence: None)
  Receive Date: 20071127
  Receipt Date: 20071113
  Transmission Date: 20080405
  Serious: Yes (Hospitalization, Other)
  Sender: FDA-Public Use
  Company Number: JP-ELI_LILLY_AND_COMPANY-JP200711004095

PATIENT
  Age: 81 Year
  Sex: Male
  Weight: 58 kg

DRUGS (14)
  1. GEMZAR [Suspect]
     Indication: LUNG ADENOCARCINOMA STAGE IV
     Dosage: 1200 MG/M2, OTHER
     Route: 042
     Dates: start: 20061012, end: 20061012
  2. GEMZAR [Suspect]
     Dosage: 1000 MG/M2, OTHER
     Route: 042
     Dates: start: 20070830, end: 20070830
  3. IRESSA [Concomitant]
     Indication: LUNG ADENOCARCINOMA STAGE IV
     Dates: start: 20030101, end: 20060101
  4. IRESSA [Concomitant]
     Dates: start: 20060101, end: 20070101
  5. ASPIRIN [Concomitant]
  6. SIGMART [Concomitant]
  7. DILTIAZEM HCL [Concomitant]
  8. PERSANTINE [Concomitant]
  9. DEPAS [Concomitant]
  10. ADALAT [Concomitant]
  11. BEZATOL - SLOW RELEASE [Concomitant]
  12. GASTER [Concomitant]
  13. GLYSENNID [Concomitant]
  14. NITRODERM [Concomitant]

REACTIONS (4)
  - CARDIAC FAILURE [None]
  - MALIGNANT NEOPLASM PROGRESSION [None]
  - PLEURAL EFFUSION [None]
  - PULMONARY OEDEMA [None]
